FAERS Safety Report 9111133 (Version 1)
Quarter: 2013Q1

REPORT INFORMATION
  Report Type: Spontaneous
  Country: US (occurrence: US)
  Receive Date: 20130219
  Receipt Date: 20130219
  Transmission Date: 20140127
  Serious: No
  Sender: FDA-Public Use
  Company Number: US-BRISTOL-MYERS SQUIBB COMPANY-16947525

PATIENT
  Age: 48 Year
  Sex: Female

DRUGS (3)
  1. ABATACEPT SUBQ INJECTION 125MG/ML [Suspect]
     Indication: RHEUMATOID ARTHRITIS
     Dosage: STARTED ORENCIA SQ IN JAN12 OR FEB12
     Route: 058
     Dates: start: 2012
  2. ORENCIA [Suspect]
     Indication: RHEUMATOID ARTHRITIS
     Dosage: SWITCHED TO IV, DOSE: 4 VIALS, LASTINF:10SEP2012
     Route: 042
     Dates: start: 2012
  3. ARAVA [Concomitant]

REACTIONS (5)
  - Feeling jittery [Unknown]
  - Balance disorder [Unknown]
  - Malaise [Unknown]
  - Pain [Unknown]
  - Cystitis [Unknown]
